FAERS Safety Report 20697306 (Version 1)
Quarter: 2022Q2

REPORT INFORMATION
  Report Type: Spontaneous
  Country: US (occurrence: US)
  Receive Date: 20220411
  Receipt Date: 20220411
  Transmission Date: 20220720
  Serious: No
  Sender: FDA-Public Use
  Company Number: US-Adamas_Pharmaceuticals-USA-POI1235202100045

PATIENT
  Age: 40 Year
  Sex: Female

DRUGS (2)
  1. OSMOLEX ER [Suspect]
     Active Substance: AMANTADINE
     Indication: Myoclonus
     Dosage: 129 MG AND 258 MG TABLETS
     Dates: start: 202101
  2. OSMOLEX ER [Suspect]
     Active Substance: AMANTADINE
     Dates: end: 202101

REACTIONS (2)
  - Feeling jittery [Unknown]
  - Tremor [Unknown]

NARRATIVE: CASE EVENT DATE: 20210101
